FAERS Safety Report 12663234 (Version 1)
Quarter: 2016Q3

REPORT INFORMATION
  Report Type: Spontaneous
  Country: US (occurrence: None)
  Receive Date: 20160817
  Receipt Date: 20160817
  Transmission Date: 20161109
  Serious: Yes (Disabling)
  Sender: FDA-Public Use
  Company Number: None

PATIENT
  Age: 91 Year
  Sex: Female
  Weight: 74.84 kg

DRUGS (15)
  1. LISINOPRIL. [Concomitant]
     Active Substance: LISINOPRIL
  2. ROLLATOR, LIFT CHAIR [Concomitant]
  3. MULTI FOR HER WITH IRON [Concomitant]
  4. CALCIUM/MAGNESIUM/ZINC [Concomitant]
  5. JANUVIA [Suspect]
     Active Substance: SITAGLIPTIN PHOSPHATE
     Indication: BLOOD GLUCOSE INCREASED
     Dosage: 1 TABLET(S) IN THE MORNING TAKEN BY MOUTH
     Route: 048
     Dates: start: 20160323, end: 20160725
  6. CALCIUM 600+D [Concomitant]
     Active Substance: CALCIUM\VITAMIN D
  7. POTASSIUM CL [Concomitant]
     Active Substance: POTASSIUM CHLORIDE
  8. ALOE VERA CAPSULE [Concomitant]
  9. FISH OIL [Concomitant]
     Active Substance: FISH OIL
  10. OSTEO BI-FLEX TRIPLE STRENGTH [Concomitant]
  11. LEVIMIR FLEXTOUCH PEN [Concomitant]
  12. SYNTHROID [Concomitant]
     Active Substance: LEVOTHYROXINE SODIUM
  13. JOINT ADVANTAGE GOLD [Concomitant]
  14. AGGRENOX [Concomitant]
     Active Substance: ASPIRIN\DIPYRIDAMOLE
  15. BIOTIN [Concomitant]
     Active Substance: BIOTIN

REACTIONS (8)
  - Erythema [None]
  - Dermatitis allergic [None]
  - Skin disorder [None]
  - Skin ulcer [None]
  - Quality of life decreased [None]
  - Arthralgia [None]
  - Peripheral swelling [None]
  - Impaired driving ability [None]

NARRATIVE: CASE EVENT DATE: 20160727
